FAERS Safety Report 8738291 (Version 2)
Quarter: 2012Q4

REPORT INFORMATION
  Report Type: 
  Country: US (occurrence: US)
  Receive Date: 20120823
  Receipt Date: 20120912
  Transmission Date: 20130627
  Serious: Yes (Hospitalization, Other)
  Sender: FDA-Public Use
  Company Number: US-TEVA-354825USA

PATIENT
  Sex: Female

DRUGS (1)
  1. COPAXONE [Suspect]
     Indication: MULTIPLE SCLEROSIS

REACTIONS (4)
  - Tympanic membrane perforation [Recovered/Resolved]
  - Staphylococcal infection [Recovered/Resolved]
  - Ear infection [Recovered/Resolved]
  - Multiple sclerosis relapse [Unknown]
